FAERS Safety Report 13150514 (Version 4)
Quarter: 2018Q1

REPORT INFORMATION
  Report Type: Report from Study
  Country: US (occurrence: US)
  Receive Date: 20170124
  Receipt Date: 20180108
  Transmission Date: 20180508
  Serious: No
  Sender: FDA-Public Use
  Company Number: US-AMGEN-USASL2017006984

PATIENT
  Age: 38 Year
  Sex: Female

DRUGS (1)
  1. REPATHA [Suspect]
     Active Substance: EVOLOCUMAB
     Indication: HYPERCHOLESTEROLAEMIA
     Dosage: 3 INJECTIONS PER MONTH
     Route: 065
     Dates: start: 2016

REACTIONS (3)
  - Drug ineffective [Unknown]
  - Unevaluable event [Unknown]
  - Off label use [Unknown]
